FAERS Safety Report 9404966 (Version 1)
Quarter: 2013Q3

REPORT INFORMATION
  Report Type: Spontaneous
  Country: US (occurrence: None)
  Receive Date: 20130715
  Receipt Date: 20130715
  Transmission Date: 20140515
  Serious: Yes (Hospitalization)
  Sender: FDA-Public Use
  Company Number: 7223040

PATIENT
  Sex: 0

DRUGS (3)
  1. LEVOTHYROX [Suspect]
     Indication: HYPOTHYROIDISM
     Dosage: LONG TERM?
     Route: 048
  2. UN-ALFA (ALFACALCIDOL) (1 MICROGRAM) (ALFACALCIDOL) [Suspect]
     Dosage: LONG TERM 1 MONTH BEFORE HOSPITALIZATION
     Route: 048
  3. OROCAL [Suspect]
     Indication: BONE DENSITY DECREASED
     Dosage: 4 DF LONG TERM??
     Route: 048
     Dates: start: 20130612

REACTIONS (4)
  - Hypercalcaemia [None]
  - Renal failure acute [None]
  - Dehydration [None]
  - Headache [None]
